FAERS Safety Report 4774925-1 (Version None)
Quarter: 2005Q3

REPORT INFORMATION
  Report Type: 
  Country: None (occurrence: None)
  Receive Date: 20050919
  Receipt Date: 20050906
  Transmission Date: 20060218
  Serious: Yes (Death, Hospitalization, Other)
  Sender: FDA-Public Use
  Company Number: 2005100520

PATIENT
  Age: 40 Year
  Sex: Male

DRUGS (2)
  1. NEURONTIN [Suspect]
     Indication: PETIT MAL EPILEPSY
     Dosage: 1800 MG (600 MG, 3 IN 1 D), ORAL
     Route: 048
  2. DEPAKINE CHRONO (VALPROATE SODUM, VALPROIC ACID) [Concomitant]

REACTIONS (7)
  - AMNESIA [None]
  - BRAIN NEOPLASM MALIGNANT [None]
  - COMA [None]
  - CONFUSIONAL STATE [None]
  - FATIGUE [None]
  - SOMNOLENCE [None]
  - THERAPY NON-RESPONDER [None]
